FAERS Safety Report 9052642 (Version 2)
Quarter: 2013Q1

REPORT INFORMATION
  Report Type: Spontaneous
  Country: US (occurrence: US)
  Receive Date: 20130207
  Receipt Date: 20130212
  Transmission Date: 20140127
  Serious: No
  Sender: FDA-Public Use
  Company Number: US-B.I. PHARMACEUTICALS,INC./RIDGEFIELD-2013-BI-03458BP

PATIENT
  Age: 60 None
  Sex: Female

DRUGS (7)
  1. SPIRIVA [Suspect]
     Indication: CHRONIC OBSTRUCTIVE PULMONARY DISEASE
     Dosage: 18 MCG
     Route: 055
  2. TOVIAZ [Concomitant]
     Route: 048
  3. LIPITOR [Concomitant]
     Indication: HYPERTENSION
     Route: 048
  4. SINGULAIR [Concomitant]
     Route: 048
  5. LISINOPRIL [Concomitant]
     Indication: HYPERTENSION
     Route: 048
  6. ALBUTEROL [Concomitant]
     Route: 055
  7. DALIRESP [Concomitant]
     Route: 048

REACTIONS (4)
  - Tremor [Not Recovered/Not Resolved]
  - Pulmonary congestion [Recovered/Resolved]
  - Product quality issue [Recovered/Resolved]
  - Product quality issue [Recovered/Resolved]
